FAERS Safety Report 15969454 (Version 5)
Quarter: 2019Q2

REPORT INFORMATION
  Report Type: Report from Study
  Country: US (occurrence: US)
  Receive Date: 20190215
  Receipt Date: 20190625
  Transmission Date: 20190711
  Serious: Yes (Other)
  Sender: FDA-Public Use
  Company Number: US-ACTELION-A-NJ2016-138765

PATIENT
  Sex: Female
  Weight: 54.42 kg

DRUGS (4)
  1. ORENITRAM [Suspect]
     Active Substance: TREPROSTINIL
     Indication: PRODUCT USED FOR UNKNOWN INDICATION
     Dosage: 0.125 MG, TID
     Route: 065
  2. OPSUMIT [Suspect]
     Active Substance: MACITENTAN
     Dosage: 10 MG, QD
     Route: 048
  3. ADCIRCA [Concomitant]
     Active Substance: TADALAFIL
  4. OPSUMIT [Suspect]
     Active Substance: MACITENTAN
     Indication: PULMONARY ARTERIAL HYPERTENSION
     Dosage: 10 MG, QD
     Route: 048
     Dates: start: 20140909

REACTIONS (21)
  - Diarrhoea [Recovering/Resolving]
  - Dyspnoea exertional [Unknown]
  - Tinnitus [Unknown]
  - Abdominal distension [Unknown]
  - Heart rate increased [Unknown]
  - Nasal congestion [Unknown]
  - Headache [Recovering/Resolving]
  - Eructation [Unknown]
  - Decreased appetite [Unknown]
  - Chronic kidney disease [Unknown]
  - Gastric disorder [Unknown]
  - Weight increased [Unknown]
  - Deafness [Unknown]
  - Flatulence [Unknown]
  - Musculoskeletal stiffness [Unknown]
  - Ulcer [Unknown]
  - Blood creatine increased [Unknown]
  - Abdominal pain upper [Unknown]
  - Haematochezia [Unknown]
  - Catheterisation cardiac [Unknown]
  - Scleroderma [Unknown]
